FAERS Safety Report 6853074-2 (Version None)
Quarter: 2010Q3

REPORT INFORMATION
  Report Type: 
  Country: None (occurrence: None)
  Receive Date: 20100717
  Receipt Date: 20080109
  Transmission Date: 20110219
  Serious: No
  Sender: FDA-Public Use
  Company Number: US-PFIZER INC-2007099720

PATIENT
  Age: 80 Year
  Sex: Male

DRUGS (10)
  1. CHANTIX [Suspect]
     Indication: SMOKING CESSATION THERAPY
  2. LASIX [Concomitant]
  3. NEURONTIN [Concomitant]
  4. LORAZEPAM [Concomitant]
  5. TAMSULOSIN HYDROCHLORIDE [Concomitant]
  6. VITAMIN E [Concomitant]
  7. PROTONIX [Concomitant]
  8. CELEXA [Concomitant]
  9. CHONDROITIN SULFATE [Concomitant]
  10. ALL OTHER THERAPEUTIC PRODUCTS [Concomitant]

REACTIONS (4)
  - ABNORMAL DREAMS [None]
  - DEPRESSION [None]
  - EMOTIONAL DISORDER [None]
  - MALAISE [None]
